FAERS Safety Report 4797370-1 (Version None)
Quarter: 2005Q4

REPORT INFORMATION
  Report Type: 
  Country: None (occurrence: None)
  Receive Date: 20051013
  Receipt Date: 20051003
  Transmission Date: 20060501
  Serious: Yes (Other)
  Sender: FDA-Public Use
  Company Number: US-JNJFOC-20051000832

PATIENT
  Sex: Male

DRUGS (3)
  1. EXTRA STRENGTH TYLENOL [Suspect]
     Route: 048
  2. EXTRA STRENGTH TYLENOL [Suspect]
     Route: 048
  3. OTHER UNSPECIFIED MEDICATIONS [Concomitant]

REACTIONS (2)
  - ANAPHYLACTIC REACTION [None]
  - REACTION TO FOOD ADDITIVE [None]
